FAERS Safety Report 7766771-1 (Version None)
Quarter: 2011Q3

REPORT INFORMATION
  Report Type: 
  Country: None (occurrence: None)
  Receive Date: 20110922
  Receipt Date: 20110324
  Transmission Date: 20111222
  Serious: No
  Sender: FDA-Public Use
  Company Number: US-ASTRAZENECA-2010SE25158

PATIENT
  Age: 63 Year
  Sex: Female
  Weight: 60.8 kg

DRUGS (7)
  1. ZANAFLEX [Concomitant]
     Indication: MUSCLE SPASMS
  2. CHLORAL HYDRATE [Concomitant]
  3. KLONOPIN [Concomitant]
     Indication: ANXIETY
  4. SEROQUEL [Suspect]
     Indication: BIPOLAR DISORDER
     Dosage: 3-4 TABLETS AT BEDTIME
     Route: 048
  5. SEROQUEL [Suspect]
     Indication: ANXIETY
     Dosage: 3-4 TABLETS AT BEDTIME
     Route: 048
  6. SEROQUEL [Suspect]
     Dosage: 1-2 TABLETS, 50 TO 100 MG AT BEDTIME
     Route: 048
     Dates: end: 20110316
  7. SEROQUEL [Suspect]
     Dosage: 1-2 TABLETS, 50 TO 100 MG AT BEDTIME
     Route: 048
     Dates: end: 20110316

REACTIONS (7)
  - WEIGHT INCREASED [None]
  - CONSTIPATION [None]
  - INCORRECT DOSE ADMINISTERED [None]
  - URINE OUTPUT DECREASED [None]
  - FREQUENT BOWEL MOVEMENTS [None]
  - ABASIA [None]
  - DEHYDRATION [None]
